FAERS Safety Report 24645311 (Version 1)
Quarter: 2024Q4

REPORT INFORMATION
  Report Type: Spontaneous
  Country: ES (occurrence: ES)
  Receive Date: 20241121
  Receipt Date: 20241121
  Transmission Date: 20250115
  Serious: Yes (Hospitalization)
  Sender: SANDOZ
  Company Number: ES-ROCHE-3523027

PATIENT
  Age: 70 Year
  Sex: Male
  Weight: 65.1 kg

DRUGS (27)
  1. ATEZOLIZUMAB [Suspect]
     Active Substance: ATEZOLIZUMAB
     Indication: Non-small cell lung cancer metastatic
     Dosage: UNK
     Route: 042
  2. ATEZOLIZUMAB [Suspect]
     Active Substance: ATEZOLIZUMAB
     Dosage: UNK
     Route: 042
  3. CARBOPLATIN [Suspect]
     Active Substance: CARBOPLATIN
     Indication: Non-small cell lung cancer metastatic
     Dosage: 375 MG, TIW
     Route: 042
     Dates: start: 20230801
  4. CARBOPLATIN [Suspect]
     Active Substance: CARBOPLATIN
     Dosage: 890 MG, TIW
     Route: 042
  5. PEMETREXED [Suspect]
     Active Substance: PEMETREXED
     Indication: Non-small cell lung cancer metastatic
     Dosage: 889.5 MG, TIW
     Route: 042
     Dates: start: 20230801
  6. PEMBROLIZUMAB [Suspect]
     Active Substance: PEMBROLIZUMAB
     Indication: Non-small cell lung cancer metastatic
     Dosage: 200 ML, TIW
     Route: 042
     Dates: start: 20230801
  7. ASPIRIN [Concomitant]
     Active Substance: ASPIRIN
     Indication: Neutrophil count decreased
     Dosage: 100 MG
     Route: 048
     Dates: start: 20200508
  8. AMOXICILLIN [Concomitant]
     Active Substance: AMOXICILLIN
     Indication: Product used for unknown indication
     Dosage: 4 G
     Route: 048
     Dates: start: 20240229, end: 20240307
  9. PYRIDOXINE HYDROCHLORIDE [Concomitant]
     Active Substance: PYRIDOXINE HYDROCHLORIDE
     Indication: Neutrophil count decreased
     Dosage: 300 MG
     Route: 048
     Dates: start: 20230719
  10. CIPROFLOXACIN HYDROCHLORIDE [Concomitant]
     Active Substance: CIPROFLOXACIN HYDROCHLORIDE
     Indication: Product used for unknown indication
     Dosage: 0.5 MG
     Route: 048
     Dates: start: 20240229, end: 20240307
  11. DEXAMETHASONE [Concomitant]
     Active Substance: DEXAMETHASONE
     Indication: Prophylaxis
     Dosage: 8 MG
     Route: 048
     Dates: start: 20230731, end: 20240220
  12. LEVOTHYROXINE SODIUM [Concomitant]
     Active Substance: LEVOTHYROXINE SODIUM
     Indication: Product used for unknown indication
     Dosage: 125 MG
     Route: 048
     Dates: start: 20231218
  13. FAMOTIDINE [Concomitant]
     Active Substance: FAMOTIDINE
     Indication: Neutrophil count decreased
     Dosage: 20 MG
     Route: 048
     Dates: start: 20230719
  14. ACETAMINOPHEN [Concomitant]
     Active Substance: ACETAMINOPHEN
     Indication: Neutrophil count decreased
     Dosage: 1000 MG
     Route: 048
     Dates: start: 20200508
  15. PIPERACILLIN [Concomitant]
     Active Substance: PIPERACILLIN
     Indication: Product used for unknown indication
     Dosage: 137 MG
     Route: 048
     Dates: start: 20240109, end: 20240926
  16. PREDNISONE [Concomitant]
     Active Substance: PREDNISONE
     Indication: Product used for unknown indication
     Dosage: 500 MG
     Route: 048
     Dates: start: 20240229, end: 20240307
  17. TAZOBACTAM [Concomitant]
     Active Substance: TAZOBACTAM
     Indication: Product used for unknown indication
     Dosage: UNK
     Route: 065
     Dates: start: 20230719
  18. Tiamina [Concomitant]
     Indication: Product used for unknown indication
     Dosage: 300 MG
     Route: 048
     Dates: start: 20230719
  19. TRAZODONE [Concomitant]
     Active Substance: TRAZODONE HYDROCHLORIDE
     Indication: Arthritis
     Dosage: 100 MG
     Route: 065
     Dates: start: 20230606
  20. METHYLPREDNISOLONE [Concomitant]
     Active Substance: METHYLPREDNISOLONE
     Indication: Product used for unknown indication
     Dosage: 500 MG
     Route: 048
     Dates: start: 20240229, end: 20240307
  21. ZOLEDRONIC ACID [Concomitant]
     Active Substance: ZOLEDRONIC ACID
     Dosage: 10 MG
     Route: 048
     Dates: start: 20240619
  22. ZOLEDRONIC ACID [Concomitant]
     Active Substance: ZOLEDRONIC ACID
     Dosage: 20 MG
     Route: 048
     Dates: start: 20240618, end: 20240619
  23. ZOLEDRONIC ACID [Concomitant]
     Active Substance: ZOLEDRONIC ACID
     Dosage: 4 MG
     Route: 048
     Dates: start: 20240927
  24. ZOLEDRONIC ACID [Concomitant]
     Active Substance: ZOLEDRONIC ACID
     Dosage: 40 MG
     Route: 048
     Dates: start: 20240616, end: 20240617
  25. ZOLEDRONIC ACID [Concomitant]
     Active Substance: ZOLEDRONIC ACID
     Dosage: 60 MG
     Route: 048
     Dates: start: 20240614, end: 20240615
  26. ZOLEDRONIC ACID [Concomitant]
     Active Substance: ZOLEDRONIC ACID
     Indication: Product used for unknown indication
     Dosage: 80 MG
     Route: 048
     Dates: start: 20240612
  27. ZOLICO [Concomitant]
     Indication: Product used for unknown indication
     Dosage: 150 MG
     Route: 048
     Dates: start: 20240927

REACTIONS (2)
  - Nephritis [Not Recovered/Not Resolved]
  - Colitis [Recovered/Resolved]

NARRATIVE: CASE EVENT DATE: 20240301
